FAERS Safety Report 7209861-4 (Version None)
Quarter: 2011Q1

REPORT INFORMATION
  Report Type: 
  Country: None (occurrence: None)
  Receive Date: 20110104
  Receipt Date: 20101123
  Transmission Date: 20110831
  Serious: Yes (Other)
  Sender: FDA-Public Use
  Company Number: US-BAYER-201034368NA

PATIENT
  Sex: Male
  Weight: 79.365 kg

DRUGS (15)
  1. OMNISCAN [Suspect]
     Indication: NUCLEAR MAGNETIC RESONANCE IMAGING ABDOMINAL
     Route: 042
     Dates: start: 20060112, end: 20060112
  2. PROGRAF [Concomitant]
  3. ASPIRIN [Concomitant]
  4. OPTIMARK [Suspect]
     Indication: NUCLEAR MAGNETIC RESONANCE IMAGING ABDOMINAL
     Route: 042
     Dates: start: 20060525, end: 20060525
  5. METOPROLOL SUCCINATE [Concomitant]
  6. WARFARIN SODIUM [Concomitant]
  7. CYTOXAN [Concomitant]
  8. MAGNEVIST [Suspect]
     Indication: NUCLEAR MAGNETIC RESONANCE IMAGING
     Dates: start: 20060206, end: 20060206
  9. UNKNOWN GBCA [Suspect]
     Indication: NUCLEAR MAGNETIC RESONANCE IMAGING
  10. UNKNOWN GBCA [Suspect]
     Indication: ANGIOGRAM
     Route: 042
     Dates: start: 20071030, end: 20071030
  11. MULTIHANCE [Suspect]
     Indication: ANGIOGRAM
  12. PREDNISONE [Concomitant]
  13. NORVASC [Concomitant]
  14. PLAVIX [Concomitant]
  15. CLONIDINE [Concomitant]

REACTIONS (13)
  - SKIN EXFOLIATION [None]
  - JOINT RANGE OF MOTION DECREASED [None]
  - JOINT CONTRACTURE [None]
  - NEPHROGENIC SYSTEMIC FIBROSIS [None]
  - SKIN HYPERPIGMENTATION [None]
  - FIBROSIS [None]
  - DERMATITIS [None]
  - PAIN [None]
  - OEDEMA [None]
  - SKIN INDURATION [None]
  - SKIN DISORDER [None]
  - SKIN TIGHTNESS [None]
  - SKIN HYPERTROPHY [None]
